FAERS Safety Report 10148844 (Version 1)
Quarter: 2014Q2

REPORT INFORMATION
  Report Type: Report from Study
  Country: NL (occurrence: NL)
  Receive Date: 20140502
  Receipt Date: 20140502
  Transmission Date: 20141212
  Serious: Yes (Death, Hospitalization)
  Sender: FDA-Public Use
  Company Number: NL-ROCHE-1388998

PATIENT
  Age: 73 Year
  Sex: Female
  Weight: 64 kg

DRUGS (4)
  1. BEVACIZUMAB [Suspect]
     Indication: GASTRIC CANCER
     Dosage: CUMULATIVE DOSE1590MG
     Route: 042
     Dates: start: 20130813, end: 20130924
  2. CAPECITABINE [Suspect]
     Indication: GASTRIC CANCER
     Dosage: CUMULATIVE DOSE: 1500MG
     Route: 048
     Dates: start: 20130813, end: 20130924
  3. DOCETAXEL [Suspect]
     Indication: GASTRIC CANCER
     Dosage: CUMULATIVE DOSE: 185MG
     Route: 042
     Dates: start: 20130813, end: 20130924
  4. OXALIPLATIN [Suspect]
     Indication: GASTRIC CANCER
     Dosage: CUMULATIVE DOSE: 570MG
     Route: 042
     Dates: start: 20130813, end: 20130924

REACTIONS (2)
  - Vomiting [Fatal]
  - Oesophageal obstruction [Fatal]
